FAERS Safety Report 7755046-2 (Version None)
Quarter: 2011Q3

REPORT INFORMATION
  Report Type: 
  Country: None (occurrence: None)
  Receive Date: 20110916
  Receipt Date: 20110905
  Transmission Date: 20111222
  Serious: Yes (Hospitalization, Other)
  Sender: FDA-Public Use
  Company Number: DE-ELI_LILLY_AND_COMPANY-DE201109001068

PATIENT
  Age: 40 Year
  Sex: Male

DRUGS (7)
  1. MARCUMAR [Concomitant]
     Dosage: UNK
     Dates: start: 20101101
  2. REMICUT [Concomitant]
  3. CALCIUM W/VITAMIN D                /00188401/ [Concomitant]
  4. OPIPRAMOL [Concomitant]
     Dosage: UNK
     Dates: start: 20101001
  5. NICOTINE [Concomitant]
  6. FORTEO [Suspect]
     Indication: OSTEOPOROSIS
     Dosage: UNK, QD
     Route: 058
     Dates: start: 20100517, end: 20110101
  7. TILIDIN [Concomitant]

REACTIONS (2)
  - CROHN'S DISEASE [None]
  - SPINAL FRACTURE [None]
